FAERS Safety Report 19506186 (Version 3)
Quarter: 2021Q4

REPORT INFORMATION
  Report Type: Report from Study
  Country: US (occurrence: US)
  Receive Date: 20210708
  Receipt Date: 20211227
  Transmission Date: 20220303
  Serious: No
  Sender: FDA-Public Use
  Company Number: NVSC2021US145128

PATIENT
  Sex: Female

DRUGS (1)
  1. ENTRESTO [Suspect]
     Active Substance: SACUBITRIL\VALSARTAN
     Indication: Product used for unknown indication
     Dosage: UNK
     Route: 048
     Dates: start: 20210601

REACTIONS (7)
  - Dyspnoea [Unknown]
  - Anxiety [Unknown]
  - Weight increased [Unknown]
  - Seasonal allergy [Unknown]
  - Feeding disorder [Unknown]
  - Oropharyngeal pain [Unknown]
  - Nasopharyngitis [Unknown]
